FAERS Safety Report 9130775 (Version 1)
Quarter: 2013Q1

REPORT INFORMATION
  Report Type: Spontaneous
  Country: AR (occurrence: AR)
  Receive Date: 20130301
  Receipt Date: 20130301
  Transmission Date: 20140127
  Serious: Yes (Death)
  Sender: FDA-Public Use
  Company Number: PHHY2013AR019981

PATIENT
  Age: 58 Year
  Sex: Female

DRUGS (4)
  1. LAPENAX [Suspect]
     Indication: SCHIZOPHRENIA, PARANOID TYPE
     Dosage: UNK
     Route: 048
  2. HALOPERIDOL [Concomitant]
     Dosage: UNK
  3. QUETIAPINE [Concomitant]
     Dosage: UNK UKN, UNK
  4. LEVOMEPROMAZINE [Concomitant]
     Dosage: UNK

REACTIONS (1)
  - Cardio-respiratory arrest [Fatal]
